FAERS Safety Report 15306105 (Version 2)
Quarter: 2019Q3

REPORT INFORMATION
  Report Type: Spontaneous
  Country: US (occurrence: US)
  Receive Date: 20180822
  Receipt Date: 20190823
  Transmission Date: 20191004
  Serious: Yes (Other)
  Sender: FDA-Public Use
  Company Number: US-PFIZER INC-2017540694

PATIENT
  Age: 49 Year
  Sex: Female

DRUGS (1)
  1. GENOTROPIN [Suspect]
     Active Substance: SOMATROPIN
     Dosage: 0.4 MG, DAILY
     Dates: start: 20171014

REACTIONS (10)
  - White blood cell count increased [Unknown]
  - Blood glucose increased [Unknown]
  - Acne [Unknown]
  - Red cell distribution width decreased [Unknown]
  - Dry skin [Unknown]
  - Pituitary-dependent Cushing^s syndrome [Unknown]
  - Aspartate aminotransferase increased [Unknown]
  - Skin lesion [Unknown]
  - Pruritus [Unknown]
  - Skin striae [Unknown]
